FAERS Safety Report 23720813 (Version 1)
Quarter: 2024Q2

REPORT INFORMATION
  Report Type: Spontaneous
  Country: US (occurrence: US)
  Receive Date: 20240409
  Receipt Date: 20240409
  Transmission Date: 20240716
  Serious: Yes (Other)
  Sender: FDA-Public Use
  Company Number: US-AMGEN-USASP2024067752

PATIENT
  Age: 10 Day
  Sex: Male

DRUGS (13)
  1. PROCRIT [Suspect]
     Active Substance: ERYTHROPOIETIN
     Indication: Anaemia
     Dosage: UNK
     Route: 065
  2. WARFARIN [Concomitant]
     Active Substance: WARFARIN
  3. LEVETIRACETAM [Concomitant]
     Active Substance: LEVETIRACETAM
  4. PHENOBARBITAL [Concomitant]
     Active Substance: PHENOBARBITAL
  5. IRON [Concomitant]
     Active Substance: IRON
  6. ALBUMIN HUMAN [Concomitant]
     Active Substance: ALBUMIN HUMAN
  7. FUROSEMIDE [Concomitant]
     Active Substance: FUROSEMIDE
  8. SPIRONOLACTONE [Concomitant]
     Active Substance: SPIRONOLACTONE
  9. Immunoglobulin [Concomitant]
  10. LEVOTHYROXINE [Concomitant]
     Active Substance: LEVOTHYROXINE\LEVOTHYROXINE SODIUM
  11. LISINOPRIL [Concomitant]
     Active Substance: LISINOPRIL
  12. IRON [Concomitant]
     Active Substance: IRON
  13. COPPER [Concomitant]
     Active Substance: COPPER

REACTIONS (3)
  - Proteinuria [Unknown]
  - Pleuroperitoneal communication [Unknown]
  - Failure to thrive [Unknown]
